FAERS Safety Report 7399335-2 (Version None)
Quarter: 2011Q2

REPORT INFORMATION
  Report Type: 
  Country: None (occurrence: None)
  Receive Date: 20110407
  Receipt Date: 20110401
  Transmission Date: 20111010
  Serious: Yes (Hospitalization)
  Sender: FDA-Public Use
  Company Number: BR-ABBOTT-11P-020-0716126-00

PATIENT
  Sex: Female
  Weight: 90 kg

DRUGS (5)
  1. CANDESARTAN [Concomitant]
     Indication: HYPERTENSION
     Route: 048
     Dates: start: 20100401
  2. HUMIRA [Suspect]
     Dates: start: 20110303
  3. HUMIRA [Suspect]
     Indication: RHEUMATOID ARTHRITIS
     Route: 058
     Dates: start: 20080601
  4. ATENOLOL AND CHLORTHALIDONE [Concomitant]
     Indication: HYPERTENSION
     Route: 048
  5. PROPRANOLOL [Concomitant]
     Indication: HYPERTENSION
     Route: 048
     Dates: start: 20101201

REACTIONS (8)
  - DYSPHAGIA [None]
  - DYSSTASIA [None]
  - THROAT IRRITATION [None]
  - PERIPHERAL COLDNESS [None]
  - INJECTION SITE PAIN [None]
  - ARTHRALGIA [None]
  - SEPSIS [None]
  - PYREXIA [None]
